FAERS Safety Report 6670152-1 (Version None)
Quarter: 2010Q2

REPORT INFORMATION
  Report Type: 
  Country: None (occurrence: None)
  Receive Date: 20100406
  Receipt Date: 20100302
  Transmission Date: 20101027
  Serious: No
  Sender: FDA-Public Use
  Company Number: US-ALLERGAN-1002698US

PATIENT
  Age: 69 Year
  Sex: Female

DRUGS (7)
  1. LATISSE [Suspect]
     Indication: GROWTH OF EYELASHES
     Dosage: 1 GTT, QPM
     Dates: start: 20090101
  2. VITAMINS [Concomitant]
  3. SYNTHROID [Concomitant]
  4. PROZAC                             /00724401/ [Concomitant]
  5. TRILIPIX [Concomitant]
  6. DICLOFENAX [Concomitant]
  7. ZYRTEC [Concomitant]

REACTIONS (2)
  - DRUG ADMINISTERED AT INAPPROPRIATE SITE [None]
  - RASH MACULAR [None]
